FAERS Safety Report 7802170-1 (Version None)
Quarter: 2011Q4

REPORT INFORMATION
  Report Type: 
  Country: None (occurrence: None)
  Receive Date: 20111007
  Receipt Date: 20110930
  Transmission Date: 20120403
  Serious: No
  Sender: FDA-Public Use
  Company Number: US-PFIZER INC-2011236402

PATIENT
  Sex: Female

DRUGS (1)
  1. BENZYLPENICILLOYL-POLYLYSINE [Suspect]
     Dosage: UNK
     Route: 048

REACTIONS (1)
  - DRUG HYPERSENSITIVITY [None]
